FAERS Safety Report 16149223 (Version 1)
Quarter: 2019Q2

REPORT INFORMATION
  Report Type: Spontaneous
  Country: CN (occurrence: CN)
  Receive Date: 20190402
  Receipt Date: 20190402
  Transmission Date: 20190711
  Serious: Yes (Other)
  Sender: FDA-Public Use
  Company Number: CN-PFIZER INC-2019131543

PATIENT
  Age: 13 Year
  Sex: Female
  Weight: 35 kg

DRUGS (2)
  1. METHOTREXATE. [Suspect]
     Active Substance: METHOTREXATE
     Indication: ACUTE LYMPHOCYTIC LEUKAEMIA
     Dosage: 5.75 G, 1X/DAY
     Route: 041
     Dates: start: 20181226, end: 20181227
  2. MERCAPTOPURINE. [Concomitant]
     Active Substance: MERCAPTOPURINE
     Indication: ACUTE LYMPHOCYTIC LEUKAEMIA
     Dosage: 30.5 MG, 1X/DAY
     Route: 048
     Dates: start: 20181226, end: 20190122

REACTIONS (4)
  - Mouth ulceration [Recovering/Resolving]
  - Flushing [Recovering/Resolving]
  - Overdose [Unknown]
  - Pharyngeal ulceration [Recovering/Resolving]

NARRATIVE: CASE EVENT DATE: 20181226
